FAERS Safety Report 8265025-7 (Version None)
Quarter: 2012Q2

REPORT INFORMATION
  Report Type: 
  Country: None (occurrence: None)
  Receive Date: 20120406
  Receipt Date: 20120402
  Transmission Date: 20120825
  Serious: Yes (Death, Hospitalization)
  Sender: FDA-Public Use
  Company Number: PHHO2011CA021889

PATIENT
  Sex: Female

DRUGS (14)
  1. NOVOLIN 70/30 [Concomitant]
     Dosage: UNK
     Dates: start: 20110513
  2. CALCIUM CARBONATE [Concomitant]
     Dosage: UNK
     Dates: start: 20110331
  3. CYCLOSPORINE [Suspect]
     Indication: RENAL TRANSPLANT
     Dosage: 125 MG, QD
     Route: 048
     Dates: start: 20070226
  4. MYCOPHENOLATE MOFETIL (CELLCEPT) [Suspect]
     Indication: RENAL TRANSPLANT
     Dosage: 2 DF, 2/1 DAY
     Route: 048
  5. AMLODIPINE BESILATE [Concomitant]
     Dosage: UNK
     Dates: start: 20110331
  6. KETOROLAC TROMETHAMINE [Concomitant]
     Dosage: UNK
     Dates: start: 20110407
  7. OMEPRAZOLE [Concomitant]
     Dosage: UNK
     Dates: start: 20110331
  8. MULTIPLE VITAMINS [Concomitant]
     Dosage: UNK
     Dates: start: 20110307
  9. VITAMIN D [Concomitant]
     Dosage: UNK
     Dates: start: 20110307
  10. TYLENOL W/ CODEINE [Concomitant]
  11. OXYCODONE HCL [Concomitant]
  12. PREDNISOLONE [Suspect]
     Indication: RENAL TRANSPLANT
  13. FUROSEMIDE [Concomitant]
     Dosage: UNK
     Dates: start: 20110331
  14. TOBRADEX [Concomitant]
     Dosage: UNK
     Dates: start: 20110318

REACTIONS (4)
  - LOCALISED INFECTION [None]
  - DRY GANGRENE [None]
  - INTESTINAL ISCHAEMIA [None]
  - PERIPHERAL ISCHAEMIA [None]
